FAERS Safety Report 17464980 (Version 4)
Quarter: 2020Q2

REPORT INFORMATION
  Report Type: Report from Study
  Country: US (occurrence: US)
  Receive Date: 20200226
  Receipt Date: 20200522
  Transmission Date: 20200713
  Serious: Yes (Death, Hospitalization)
  Sender: FDA-Public Use
  Company Number: US-EXELIXIS-XL18420027248

PATIENT

DRUGS (15)
  1. XL184 [Suspect]
     Active Substance: CABOZANTINIB
     Dosage: 20 MG, QD
     Route: 048
     Dates: end: 20200202
  2. XANAX [Concomitant]
     Active Substance: ALPRAZOLAM
     Dosage: UNK
  3. ROXICODONE [Concomitant]
     Active Substance: OXYCODONE HYDROCHLORIDE
     Dosage: UNK
  4. ADULTS CONTINUOUS PARENTERAL NUTRITION [Concomitant]
     Dosage: UNK
  5. PROVENTIL [Concomitant]
     Active Substance: ALBUTEROL
     Dosage: UNK
  6. SENOKOT [Concomitant]
     Active Substance: SENNOSIDES
     Dosage: UNK
  7. XL184 [Suspect]
     Active Substance: CABOZANTINIB
     Indication: OESOPHAGEAL CARCINOMA
     Dosage: 40 MG, QD
     Route: 048
     Dates: start: 20191030
  8. DURVALUMAB. [Suspect]
     Active Substance: DURVALUMAB
     Indication: OESOPHAGEAL CARCINOMA
     Dosage: 1500 MG Q28 D
     Route: 042
     Dates: start: 20191030, end: 20200122
  9. PROTONIX [Concomitant]
     Active Substance: PANTOPRAZOLE SODIUM
     Dosage: UNK
  10. GENATON [Concomitant]
     Dosage: UNK
  11. MAGIC MOUTHWASH [Concomitant]
     Active Substance: DIPHENHYDRAMINE HYDROCHLORIDE\LIDOCAINE HYDROCHLORIDE\NYSTATIN
     Dosage: UNK
  12. DURAGESIC [Concomitant]
     Active Substance: FENTANYL
     Dosage: UNK
  13. ZOFRAN [Concomitant]
     Active Substance: ONDANSETRON HYDROCHLORIDE
     Dosage: UNK
  14. DIFLUCAN [Concomitant]
     Active Substance: FLUCONAZOLE
     Dosage: UNK
  15. PROAIR HFA [Concomitant]
     Active Substance: ALBUTEROL SULFATE
     Dosage: UNK

REACTIONS (11)
  - Decreased appetite [Unknown]
  - Tumour haemorrhage [Unknown]
  - Failure to thrive [Unknown]
  - Constipation [Unknown]
  - Anaemia [Unknown]
  - Oesophageal perforation [Unknown]
  - Pneumothorax [Unknown]
  - Abdominal pain upper [Unknown]
  - Death [Fatal]
  - Nausea [Unknown]
  - Vomiting [Unknown]

NARRATIVE: CASE EVENT DATE: 20200203
